FAERS Safety Report 9587377 (Version 1)
Quarter: 2013Q4

REPORT INFORMATION
  Report Type: Spontaneous
  Country: US (occurrence: None)
  Receive Date: 20131003
  Receipt Date: 20131003
  Transmission Date: 20140711
  Serious: Yes (Disabling)
  Sender: FDA-Public Use
  Company Number: None

PATIENT
  Age: 61 Year
  Sex: Female
  Weight: 87.09 kg

DRUGS (1)
  1. LEVOTHYROXINE [Suspect]
     Indication: HYPOTHYROIDISM
     Dosage: 1 PILL ONCE DAILY
     Route: 048
     Dates: start: 20130617, end: 20130929

REACTIONS (6)
  - Back pain [None]
  - Palpitations [None]
  - Heart rate increased [None]
  - Chest discomfort [None]
  - Muscle tightness [None]
  - Flatulence [None]
